FAERS Safety Report 22116396 (Version 1)
Quarter: 2023Q1

REPORT INFORMATION
  Report Type: Spontaneous
  Country: US (occurrence: US)
  Receive Date: 20230320
  Receipt Date: 20230320
  Transmission Date: 20230418
  Serious: No
  Sender: FDA-Public Use
  Company Number: US-SAREPTA THERAPEUTICS INC.-SRP2022-002703

PATIENT
  Age: 13 Year
  Sex: Male

DRUGS (1)
  1. VYONDYS 53 [Suspect]
     Active Substance: GOLODIRSEN
     Indication: Product used for unknown indication
     Dosage: 1200 MILLIGRAM, WEEKLY
     Route: 042
     Dates: start: 2020

REACTIONS (2)
  - Illness [Unknown]
  - Limb injury [Unknown]

NARRATIVE: CASE EVENT DATE: 20221030
